FAERS Safety Report 8077883-X (Version None)
Quarter: 2012Q1

REPORT INFORMATION
  Report Type: 
  Country: None (occurrence: None)
  Receive Date: 20120127
  Receipt Date: 20120120
  Transmission Date: 20120608
  Serious: Yes (Hospitalization)
  Sender: FDA-Public Use
  Company Number: FR-MERCK-1201FRA00067

PATIENT
  Age: 40 Year
  Sex: Female

DRUGS (3)
  1. ABACAVIR SULFATE AND LAMIVUDINE [Suspect]
     Indication: HIV INFECTION
     Route: 048
     Dates: start: 20111118, end: 20111221
  2. IMATINIB MESYLATE [Suspect]
     Indication: GASTROINTESTINAL NEOPLASM
     Route: 048
     Dates: start: 20111122, end: 20111201
  3. ISENTRESS [Suspect]
     Indication: HIV INFECTION
     Route: 048
     Dates: start: 20111125, end: 20111221

REACTIONS (7)
  - EOSINOPHILIA [None]
  - PYREXIA [None]
  - DRUG RASH WITH EOSINOPHILIA AND SYSTEMIC SYMPTOMS [None]
  - CHOLESTASIS [None]
  - NEUTROPENIA [None]
  - CYTOLYTIC HEPATITIS [None]
  - DERMATITIS EXFOLIATIVE [None]
